FAERS Safety Report 17544522 (Version 1)
Quarter: 2020Q1

REPORT INFORMATION
  Report Type: Spontaneous
  Country: DE (occurrence: DE)
  Receive Date: 20200316
  Receipt Date: 20200316
  Transmission Date: 20200409
  Serious: Yes (Other)
  Sender: FDA-Public Use
  Company Number: DE-PFIZER INC-2020105892

PATIENT
  Sex: Female

DRUGS (1)
  1. CYTOTEC [Suspect]
     Active Substance: MISOPROSTOL
     Indication: LABOUR INDUCTION
     Dosage: AT LEAST 9 TABLETS IN TOTAL, PROBABLY MORE
     Route: 064
     Dates: start: 20150924, end: 20150927

REACTIONS (5)
  - Hypotonia neonatal [Recovered/Resolved with Sequelae]
  - Foetal heart rate decreased [Unknown]
  - Maternal exposure during pregnancy [Recovered/Resolved with Sequelae]
  - Speech disorder developmental [Recovered/Resolved with Sequelae]
  - Disturbance in attention [Recovered/Resolved with Sequelae]

NARRATIVE: CASE EVENT DATE: 20150927
